FAERS Safety Report 6463979-2 (Version None)
Quarter: 2009Q4

REPORT INFORMATION
  Report Type: 
  Country: None (occurrence: None)
  Receive Date: 20091201
  Receipt Date: 20091125
  Transmission Date: 20100525
  Serious: Yes (Hospitalization)
  Sender: FDA-Public Use
  Company Number: US-ROCHE-670717

PATIENT
  Sex: Male

DRUGS (2)
  1. PEGASYS [Suspect]
     Indication: HEPATITIS C
     Dosage: PRE-FILLED SYRINGE, THERAPY SUSPENDED IN WEEK 1
     Route: 065
     Dates: start: 20091121, end: 20091124
  2. RIBAVIRIN [Suspect]
     Indication: HEPATITIS C
     Dosage: DIVIDED DOSES, THERAPY SUSPENDED IN WEEK 1
     Route: 065
     Dates: start: 20091121, end: 20091124

REACTIONS (1)
  - DIABETIC KETOACIDOSIS [None]
